FAERS Safety Report 4612214-6 (Version None)
Quarter: 2005Q1

REPORT INFORMATION
  Report Type: 
  Country: None (occurrence: None)
  Receive Date: 20050316
  Receipt Date: 20050228
  Transmission Date: 20050727
  Serious: Yes (Other)
  Sender: FDA-Public Use
  Company Number: USA050291956

PATIENT
  Age: 64 Year
  Sex: Female

DRUGS (6)
  1. FORTEO [Suspect]
     Indication: BONE DISORDER
     Dates: start: 20040901
  2. PREVACID [Concomitant]
  3. DESYREL [Concomitant]
  4. MS CONTIN [Concomitant]
  5. BEXTRA [Concomitant]
  6. CLIDINIUM BROMIDE [Concomitant]

REACTIONS (9)
  - ARTHRALGIA [None]
  - BALANCE DISORDER [None]
  - BONE PAIN [None]
  - CONVULSION [None]
  - FALL [None]
  - INFLUENZA [None]
  - NAUSEA [None]
  - PHARMACEUTICAL PRODUCT COMPLAINT [None]
  - VOMITING [None]
